FAERS Safety Report 12917370 (Version 1)
Quarter: 2016Q4

REPORT INFORMATION
  Report Type: Spontaneous
  Country: US (occurrence: US)
  Receive Date: 20161104
  Receipt Date: 20161104
  Transmission Date: 20170207
  Serious: Yes (Hospitalization)
  Sender: FDA-Public Use
  Company Number: None

PATIENT
  Sex: Female

DRUGS (2)
  1. GLEOSTINE [Suspect]
     Active Substance: LOMUSTINE
     Indication: NEOPLASM
     Route: 048
  2. MATULANE [Suspect]
     Active Substance: PROCARBAZINE HYDROCHLORIDE

REACTIONS (2)
  - Toxicity to various agents [None]
  - Blister [None]
